FAERS Safety Report 4782103-5 (Version None)
Quarter: 2005Q3

REPORT INFORMATION
  Report Type: 
  Country: None (occurrence: None)
  Receive Date: 20050928
  Receipt Date: 20050921
  Transmission Date: 20060218
  Serious: Yes (Hospitalization)
  Sender: FDA-Public Use
  Company Number: US-MERCK-0509USA03431

PATIENT
  Age: 57 Year
  Sex: Female

DRUGS (3)
  1. VIOXX [Suspect]
     Indication: ARTHRITIS
     Route: 048
     Dates: start: 20010801, end: 20040618
  2. TOPROL-XL [Concomitant]
     Route: 048
  3. ESTROGENS, CONJUGATED AND MEDROXYPROGESTERONE ACETATE [Concomitant]
     Route: 048

REACTIONS (2)
  - CEREBROVASCULAR ACCIDENT [None]
  - DEPRESSION [None]
